FAERS Safety Report 12254466 (Version 2)
Quarter: 2016Q2

REPORT INFORMATION
  Report Type: Other
  Country: IT (occurrence: IT)
  Receive Date: 20160411
  Receipt Date: 20160524
  Transmission Date: 20160815
  Serious: Yes (Hospitalization)
  Sender: FDA-Public Use
  Company Number: IT-MYLANLABS-2016M1014652

PATIENT

DRUGS (1)
  1. TICLOPIDINE [Suspect]
     Active Substance: TICLOPIDINE
     Indication: THROMBOSIS PROPHYLAXIS
     Dosage: 250 MG, QD
     Route: 048

REACTIONS (3)
  - Haemoptysis [Recovered/Resolved]
  - Pleural effusion [Unknown]
  - Influenza [Unknown]

NARRATIVE: CASE EVENT DATE: 20160114
